FAERS Safety Report 8800423 (Version 1)
Quarter: 2012Q4

REPORT INFORMATION
  Report Type: 
  Country: US (occurrence: US)
  Receive Date: 20120921
  Receipt Date: 20120921
  Transmission Date: 20130627
  Serious: Yes (Other)
  Sender: FDA-Public Use
  Company Number: CHPA2012US019704

PATIENT
  Age: 63 Year
  Sex: Female

DRUGS (4)
  1. GAS-X UNKNOWN [Suspect]
     Indication: FLATULENCE
     Dosage: 1-2 capsules, as needed
     Route: 048
     Dates: end: 2010
  2. FISH OIL [Concomitant]
  3. NUTRITION SUPPLEMENTS [Concomitant]
  4. CIPRO [Concomitant]

REACTIONS (5)
  - Colonic obstruction [Recovered/Resolved]
  - Blood cholesterol increased [Not Recovered/Not Resolved]
  - Diarrhoea [Recovered/Resolved]
  - Abdominal pain upper [Recovered/Resolved]
  - Rash [Recovered/Resolved]
